FAERS Safety Report 5213991-6 (Version None)
Quarter: 2007Q1

REPORT INFORMATION
  Report Type: 
  Country: None (occurrence: None)
  Receive Date: 20070122
  Receipt Date: 20070112
  Transmission Date: 20070707
  Serious: Yes (Hospitalization)
  Sender: FDA-Public Use
  Company Number: US-JNJFOC-20070103137

PATIENT
  Age: 3 Year
  Sex: Male
  Weight: 16.33 kg

DRUGS (1)
  1. DURAGESIC-100 [Suspect]
     Indication: ACCIDENTAL EXPOSURE

REACTIONS (3)
  - ACCIDENTAL EXPOSURE [None]
  - FATIGUE [None]
  - SOMNOLENCE [None]
